FAERS Safety Report 9705524 (Version 2)
Quarter: 2013Q4

REPORT INFORMATION
  Report Type: Spontaneous
  Country: US (occurrence: US)
  Receive Date: 20131122
  Receipt Date: 20131223
  Transmission Date: 20140711
  Serious: No
  Sender: FDA-Public Use
  Company Number: US-PFIZER INC-2013331784

PATIENT
  Age: 61 Year
  Sex: Female

DRUGS (10)
  1. ZITHROMAX [Suspect]
     Dosage: UNK
  2. DIFLUCAN [Suspect]
     Dosage: UNK
  3. ERYTHROMYCIN [Suspect]
     Dosage: UNK
  4. CECLOR [Suspect]
     Dosage: UNK
  5. DEPAKOTE [Suspect]
     Dosage: UNK
  6. ELMIRON [Suspect]
     Dosage: UNK
  7. NORFLEX [Suspect]
     Dosage: UNK
  8. PYRIDIUM [Suspect]
     Dosage: UNK
  9. STADOL [Suspect]
     Dosage: UNK
  10. TEQUIN [Suspect]
     Dosage: UNK

REACTIONS (2)
  - Drug hypersensitivity [Unknown]
  - Nausea [Unknown]
